FAERS Safety Report 7200128-7 (Version None)
Quarter: 2010Q4

REPORT INFORMATION
  Report Type: 
  Country: None (occurrence: None)
  Receive Date: 20101228
  Receipt Date: 20101208
  Transmission Date: 20110411
  Serious: No
  Sender: FDA-Public Use
  Company Number: US-B.I. PHARMACEUTICALS,INC./RIDGEFIELD-2010-BP-14040BP

PATIENT
  Age: 67 Year
  Sex: Female

DRUGS (2)
  1. MICARDIS [Suspect]
     Indication: HYPERTENSION
     Dosage: 20 MG
     Route: 048
     Dates: start: 20101027, end: 20101101
  2. ATENOLOL [Concomitant]
     Indication: HYPERTENSION

REACTIONS (2)
  - DYSPEPSIA [None]
  - HEART RATE INCREASED [None]
